FAERS Safety Report 10897791 (Version 2)
Quarter: 2015Q1

REPORT INFORMATION
  Report Type: Spontaneous
  Country: BR (occurrence: BR)
  Receive Date: 20150309
  Receipt Date: 20150309
  Transmission Date: 20150721
  Serious: Yes (Death)
  Sender: FDA-Public Use
  Company Number: BR-ACTAVIS-2015-04128

PATIENT
  Age: 39 Year
  Sex: Male

DRUGS (5)
  1. GEMCITABINE [Suspect]
     Active Substance: GEMCITABINE\GEMCITABINE HYDROCHLORIDE
     Indication: NASOPHARYNGEAL CANCER STAGE IV
     Dosage: 1250 MG/M2, ON DAYS 1, 8, 15 OF A 28- DAY CYCLE
     Route: 065
  2. CARBOPLATIN (UNKNOWN) [Suspect]
     Active Substance: CARBOPLATIN
     Indication: NASOPHARYNGEAL CANCER STAGE IV
     Dosage: UNK
     Route: 065
  3. CISPLATIN (UNKNOWN) [Suspect]
     Active Substance: CISPLATIN
     Indication: NASOPHARYNGEAL CANCER STAGE IV
     Dosage: UNK
     Route: 065
  4. PACLITAXEL (UNKNOWN) [Suspect]
     Active Substance: PACLITAXEL
     Indication: NASOPHARYNGEAL CANCER STAGE IV
     Dosage: UNK
     Route: 065
  5. ETOPOSIDE (UNKNOWN) [Suspect]
     Active Substance: ETOPOSIDE
     Indication: NASOPHARYNGEAL CANCER STAGE IV
     Dosage: UNK
     Route: 065

REACTIONS (2)
  - Shock [None]
  - Thrombotic microangiopathy [Fatal]
